FAERS Safety Report 20966631 (Version 1)
Quarter: 2022Q2

REPORT INFORMATION
  Report Type: Spontaneous
  Country: US (occurrence: None)
  Receive Date: 20220616
  Receipt Date: 20220616
  Transmission Date: 20220721
  Serious: Yes (Death)
  Sender: FDA-Public Use
  Company Number: 2022A220355

PATIENT
  Sex: Male
  Weight: 104.3 kg

DRUGS (1)
  1. TAGRISSO [Suspect]
     Active Substance: OSIMERTINIB
     Indication: Lung neoplasm malignant
     Route: 048

REACTIONS (4)
  - Dyspnoea [Fatal]
  - Acute respiratory distress syndrome [Fatal]
  - Pulmonary fibrosis [Fatal]
  - Illness [Unknown]
